FAERS Safety Report 4601514-1 (Version None)
Quarter: 2005Q1

REPORT INFORMATION
  Report Type: 
  Country: None (occurrence: None)
  Receive Date: 20050308
  Receipt Date: 20050302
  Transmission Date: 20050727
  Serious: Yes (Hospitalization)
  Sender: FDA-Public Use
  Company Number: NO-MERCK-0503NOR00006

PATIENT
  Sex: Male

DRUGS (2)
  1. VIOXX [Suspect]
     Indication: ANKYLOSING SPONDYLITIS
     Route: 048
     Dates: start: 20030113, end: 20030123
  2. VIOXX [Suspect]
     Route: 048
     Dates: start: 20030403, end: 20030406

REACTIONS (1)
  - MYOCARDIAL INFARCTION [None]
